FAERS Safety Report 6604409-7 (Version None)
Quarter: 2010Q1

REPORT INFORMATION
  Report Type: 
  Country: None (occurrence: None)
  Receive Date: 20100226
  Receipt Date: 20090924
  Transmission Date: 20100710
  Serious: No
  Sender: FDA-Public Use
  Company Number: A0808869A

PATIENT
  Age: 45 Year
  Sex: Female

DRUGS (3)
  1. LAMICTAL CD [Suspect]
     Indication: BIPOLAR DISORDER
     Dosage: 25MG PER DAY
     Route: 048
     Dates: start: 20090801, end: 20090801
  2. LORAZEPAM [Concomitant]
  3. UNKNOWN MEDICATION [Concomitant]

REACTIONS (3)
  - CHEST PAIN [None]
  - COUGH [None]
  - DYSPNOEA [None]
